FAERS Safety Report 8365844-2 (Version None)
Quarter: 2012Q2

REPORT INFORMATION
  Report Type: 
  Country: None (occurrence: None)
  Receive Date: 20120515
  Receipt Date: 20120501
  Transmission Date: 20120825
  Serious: Yes (Disabling, Other)
  Sender: FDA-Public Use
  Company Number: 2012MA005694

PATIENT
  Age: 50 Year
  Sex: Female

DRUGS (5)
  1. GEMCITABINE [Suspect]
     Indication: NEOPLASM MALIGNANT
     Dosage: ; IV
     Route: 042
  2. GRAPE SEED [Concomitant]
  3. THYROID TAB [Concomitant]
  4. CARBOPLATIN [Suspect]
     Indication: NEOPLASM MALIGNANT
     Dosage: ;  IV
     Route: 042
  5. MULTI-VITAMIN [Concomitant]

REACTIONS (6)
  - PERIPHERAL ISCHAEMIA [None]
  - OEDEMA PERIPHERAL [None]
  - FINGER AMPUTATION [None]
  - GANGRENE [None]
  - TELANGIECTASIA [None]
  - RED BLOOD CELL SEDIMENTATION RATE INCREASED [None]
